FAERS Safety Report 8588091-8 (Version None)
Quarter: 2012Q3

REPORT INFORMATION
  Report Type: 
  Country: None (occurrence: None)
  Receive Date: 20120813
  Receipt Date: 20120809
  Transmission Date: 20120928
  Serious: No
  Sender: FDA-Public Use
  Company Number: US-PFIZER INC-2012194591

PATIENT
  Age: 63 Year
  Sex: Female
  Weight: 71.655 kg

DRUGS (3)
  1. GABAPENTIN [Concomitant]
     Dosage: UNK
  2. CELEBREX [Suspect]
     Indication: BACK PAIN
     Dosage: 200 MG, 2X/DAY
     Dates: start: 20120808, end: 20120809
  3. ATENOLOL [Concomitant]
     Indication: HYPERTENSION
     Dosage: UNK, DAILY

REACTIONS (2)
  - TREMOR [None]
  - INSOMNIA [None]
